FAERS Safety Report 17854247 (Version 2)
Quarter: 2020Q2

REPORT INFORMATION
  Report Type: Spontaneous
  Country: HU (occurrence: HU)
  Receive Date: 20200603
  Receipt Date: 20200612
  Transmission Date: 20200714
  Serious: Yes (Other)
  Sender: FDA-Public Use
  Company Number: HU-JNJFOC-20200533001

PATIENT
  Age: 29 Year
  Sex: Male

DRUGS (2)
  1. RIVAROXABAN [Suspect]
     Active Substance: RIVAROXABAN
     Indication: ANTIPHOSPHOLIPID SYNDROME
     Dosage: UNK
     Route: 048
     Dates: start: 201810
  2. METHOTREXATE. [Concomitant]
     Active Substance: METHOTREXATE
     Indication: ANTIPHOSPHOLIPID SYNDROME
     Dosage: 15 MG, OW
     Dates: start: 201810

REACTIONS (6)
  - Pyrexia [Unknown]
  - Product use in unapproved indication [Unknown]
  - Still^s disease [Unknown]
  - Off label use [Unknown]
  - Rash macular [Unknown]
  - Musculoskeletal discomfort [Unknown]
